FAERS Safety Report 7796831-0 (Version None)
Quarter: 2011Q4

REPORT INFORMATION
  Report Type: 
  Country: None (occurrence: None)
  Receive Date: 20111005
  Receipt Date: 20110926
  Transmission Date: 20120403
  Serious: Yes (Hospitalization)
  Sender: FDA-Public Use
  Company Number: CA-ELI_LILLY_AND_COMPANY-CA201109007253

PATIENT
  Age: 67 Year
  Sex: Female

DRUGS (4)
  1. FORTEO [Suspect]
     Indication: OSTEOPOROSIS
     Dosage: 20 UG, QD
     Route: 058
     Dates: start: 20110704
  2. VITAMIN D [Concomitant]
     Dosage: 1000 IU, QD
  3. CALCIUM CARBONATE [Concomitant]
     Dosage: 1300 MG, QD
  4. ASCORBIC ACID [Concomitant]
     Dosage: UNK, BID

REACTIONS (2)
  - UPPER LIMB FRACTURE [None]
  - FALL [None]
